FAERS Safety Report 7778186-0 (Version None)
Quarter: 2011Q3

REPORT INFORMATION
  Report Type: 
  Country: None (occurrence: None)
  Receive Date: 20110926
  Receipt Date: 20110920
  Transmission Date: 20111222
  Serious: Yes (Death)
  Sender: FDA-Public Use
  Company Number: US-GILEAD-2011-0043985

PATIENT

DRUGS (16)
  1. COUMADIN [Concomitant]
  2. ACETAMINOPHEN [Concomitant]
  3. POTASSIUM CHLORIDE [Concomitant]
  4. SPIRONOLACTONE [Concomitant]
  5. LANTUS [Concomitant]
  6. NOVOLOG [Concomitant]
  7. GLIPIZIDE [Concomitant]
  8. LETAIRIS [Suspect]
     Indication: PULMONARY HYPERTENSION
     Route: 048
     Dates: start: 20110725, end: 20110822
  9. CARVEDILOL [Concomitant]
  10. TRACLEER [Concomitant]
  11. METFORMIN HCL [Concomitant]
  12. DIGOXIN [Concomitant]
  13. LISINOPRIL [Concomitant]
  14. MULTIVITAMIN AND MINERAL FORMULA [Concomitant]
  15. PRAVASTATIN [Concomitant]
  16. FUROSEMIDE [Concomitant]

REACTIONS (1)
  - DEATH [None]
